FAERS Safety Report 19233095 (Version 1)
Quarter: 2021Q2

REPORT INFORMATION
  Report Type: Spontaneous
  Country: GB (occurrence: GB)
  Receive Date: 20210507
  Receipt Date: 20210507
  Transmission Date: 20210717
  Serious: Yes (Hospitalization)
  Sender: FDA-Public Use
  Company Number: XI-ROCHE-2824455

PATIENT
  Age: 32 Year
  Sex: Male
  Weight: 93 kg

DRUGS (9)
  1. VALGANCICLOVIR. [Suspect]
     Active Substance: VALGANCICLOVIR
     Indication: CYTOMEGALOVIRUS TEST POSITIVE
     Route: 048
     Dates: start: 20210311, end: 20210413
  2. MYCOPHENOLATE MOFETIL. [Concomitant]
     Active Substance: MYCOPHENOLATE MOFETIL
     Indication: ILL-DEFINED DISORDER
  3. OMEPRAZOLE. [Concomitant]
     Active Substance: OMEPRAZOLE
     Indication: ILL-DEFINED DISORDER
  4. TACROLIMUS. [Concomitant]
     Active Substance: TACROLIMUS
     Indication: ILL-DEFINED DISORDER
  5. COTRIMOXAZOLE [Concomitant]
     Active Substance: SULFAMETHOXAZOLE\TRIMETHOPRIM
     Indication: ILL-DEFINED DISORDER
  6. AMLODIPINE [Concomitant]
     Active Substance: AMLODIPINE BESYLATE
     Indication: ILL-DEFINED DISORDER
  7. NYSTATIN. [Concomitant]
     Active Substance: NYSTATIN
     Indication: ILL-DEFINED DISORDER
  8. PREDNISOLONE. [Concomitant]
     Active Substance: PREDNISOLONE
     Indication: ILL-DEFINED DISORDER
  9. NYSTATIN. [Concomitant]
     Active Substance: NYSTATIN
     Indication: ILL-DEFINED DISORDER

REACTIONS (1)
  - Mouth ulceration [Recovering/Resolving]

NARRATIVE: CASE EVENT DATE: 20210325
